FAERS Safety Report 23047920 (Version 1)
Quarter: 2023Q4

REPORT INFORMATION
  Report Type: Spontaneous
  Country: US (occurrence: US)
  Receive Date: 20231010
  Receipt Date: 20231010
  Transmission Date: 20240110
  Serious: Yes (Other)
  Sender: FDA-Public Use
  Company Number: US-AUROBINDO-AUR-APL-2023-062442

PATIENT
  Age: 46 Year
  Sex: Male

DRUGS (9)
  1. CYCLOPHOSPHAMIDE [Suspect]
     Active Substance: CYCLOPHOSPHAMIDE
     Indication: Diffuse large B-cell lymphoma stage II
     Dosage: UNK(1 CYCLE)
     Route: 065
  2. PREDNISONE [Suspect]
     Active Substance: PREDNISONE
     Indication: Diffuse large B-cell lymphoma stage II
     Dosage: UNK(1 CYCLE)
     Route: 065
  3. VINCRISTINE SULFATE [Suspect]
     Active Substance: VINCRISTINE SULFATE
     Indication: Diffuse large B-cell lymphoma stage II
     Dosage: UNK(1 CYCLE)
     Route: 065
  4. DEXAMETHASONE [Suspect]
     Active Substance: DEXAMETHASONE
     Indication: Diffuse large B-cell lymphoma stage II
     Dosage: 40 MILLIGRAM, DAILY(FOR 4 DAYS)
     Route: 065
  5. DOXORUBICIN [Suspect]
     Active Substance: DOXORUBICIN
     Indication: Diffuse large B-cell lymphoma stage II
     Dosage: UNK(1 CYCLE)
     Route: 065
  6. ALECTINIB [Concomitant]
     Active Substance: ALECTINIB
     Indication: Prophylaxis
     Dosage: 600 MILLIGRAM, TWO TIMES A DAY
     Route: 065
  7. APIXABAN [Concomitant]
     Active Substance: APIXABAN
     Indication: COVID-19
     Dosage: UNK
     Route: 065
  8. CRIZOTINIB [Concomitant]
     Active Substance: CRIZOTINIB
     Indication: Symptom recurrence
     Dosage: 250 MILLIGRAM, TWO TIMES A DAY
     Route: 065
  9. LORLATINIB [Concomitant]
     Active Substance: LORLATINIB
     Indication: Symptom recurrence
     Dosage: 100 MILLIGRAM, DAILY
     Route: 065

REACTIONS (1)
  - Drug ineffective [Unknown]
